FAERS Safety Report 4873433-7 (Version None)
Quarter: 2005Q4

REPORT INFORMATION
  Report Type: 
  Country: None (occurrence: None)
  Receive Date: 20051201
  Receipt Date: 20050820
  Transmission Date: 20060501
  Serious: No
  Sender: FDA-Public Use
  Company Number: 2005PV001335

PATIENT
  Age: 64 Year
  Sex: Male
  Weight: 117.028 kg

DRUGS (10)
  1. BYETTA [Suspect]
     Indication: DIABETES MELLITUS NON-INSULIN-DEPENDENT
     Dosage: SEE IMAGE
     Route: 058
     Dates: start: 20050806, end: 20050906
  2. BYETTA [Suspect]
     Indication: DIABETES MELLITUS NON-INSULIN-DEPENDENT
     Dosage: SEE IMAGE
     Route: 058
     Dates: start: 20050907
  3. GLUCOPHAGE [Concomitant]
  4. LANTUS [Concomitant]
  5. GLIMEPIRIDE [Concomitant]
  6. VERAPAMIL [Concomitant]
  7. GEMFIBROZIL [Concomitant]
  8. INDAPAMIDE [Concomitant]
  9. LIPITOR [Concomitant]
  10. AVAPRO [Concomitant]

REACTIONS (7)
  - ABDOMINAL DISTENSION [None]
  - CONSTIPATION [None]
  - DYSPEPSIA [None]
  - ERUCTATION [None]
  - FATIGUE [None]
  - FLATULENCE [None]
  - NAUSEA [None]
